FAERS Safety Report 13513531 (Version 3)
Quarter: 2017Q4

REPORT INFORMATION
  Report Type: Spontaneous
  Country: CO (occurrence: CO)
  Receive Date: 20170504
  Receipt Date: 20171103
  Transmission Date: 20180320
  Serious: Yes (Other)
  Sender: FDA-Public Use
  Company Number: CO-AMGEN-COLSP2017031384

PATIENT
  Age: 78 Year
  Sex: Female

DRUGS (3)
  1. METOJECT [Concomitant]
     Active Substance: METHOTREXATE SODIUM
     Dosage: UNK
  2. METOTREXATE [Concomitant]
     Active Substance: METHOTREXATE SODIUM
     Dosage: UNK
  3. ENBREL [Suspect]
     Active Substance: ETANERCEPT
     Indication: RHEUMATOID ARTHRITIS
     Dosage: 50 MG, WEEKLY
     Route: 058
     Dates: start: 201612

REACTIONS (10)
  - Cardiac failure [Not Recovered/Not Resolved]
  - Dyspnoea [Not Recovered/Not Resolved]
  - Pain [Unknown]
  - Cardiovascular disorder [Unknown]
  - Arthralgia [Unknown]
  - Headache [Unknown]
  - Insomnia [Not Recovered/Not Resolved]
  - Gait disturbance [Unknown]
  - Pain [Recovering/Resolving]
  - Drug ineffective [Not Recovered/Not Resolved]

NARRATIVE: CASE EVENT DATE: 201701
